FAERS Safety Report 10062363 (Version 1)
Quarter: 2014Q2

REPORT INFORMATION
  Report Type: Spontaneous
  Country: US (occurrence: US)
  Receive Date: 20140407
  Receipt Date: 20140407
  Transmission Date: 20141212
  Serious: No
  Sender: FDA-Public Use
  Company Number: US-PFIZER INC-2014095663

PATIENT
  Sex: Female

DRUGS (2)
  1. ALPRAZOLAM [Suspect]
     Indication: PANIC DISORDER
     Dosage: 1 MG IN THE MORNING, 0.5 MG IN THE AFTERNOON AND 2 MG AT BEDTIME
  2. ALPRAZOLAM [Suspect]
     Indication: ANXIETY

REACTIONS (1)
  - Magnesium deficiency [Unknown]
